FAERS Safety Report 9262643 (Version 1)
Quarter: 2013Q2

REPORT INFORMATION
  Report Type: Spontaneous
  Country: US (occurrence: US)
  Receive Date: 20130430
  Receipt Date: 20130430
  Transmission Date: 20140414
  Serious: No
  Sender: FDA-Public Use
  Company Number: US-009507513-1304USA016304

PATIENT
  Sex: Female

DRUGS (7)
  1. DULERA [Suspect]
     Indication: CHRONIC OBSTRUCTIVE PULMONARY DISEASE
     Dosage: 2 PUFFS TWICE A DAY
     Route: 055
     Dates: start: 201301
  2. PREDNISONE [Concomitant]
  3. TUDORZA [Concomitant]
  4. FLECAINIDE ACETATE [Concomitant]
  5. MAXIDE [Concomitant]
  6. TRAMADOL HYDROCHLORIDE [Concomitant]
  7. ALBUTEROL [Concomitant]

REACTIONS (5)
  - Cough [Not Recovered/Not Resolved]
  - Chest discomfort [Not Recovered/Not Resolved]
  - Product quality issue [Unknown]
  - Oropharyngeal pain [Unknown]
  - Underdose [Unknown]
